FAERS Safety Report 8896145 (Version 6)
Quarter: 2013Q1

REPORT INFORMATION
  Report Type: Spontaneous
  Country: US (occurrence: US)
  Receive Date: 20121108
  Receipt Date: 20130313
  Transmission Date: 20140127
  Serious: Yes (Hospitalization, Disabling, Other)
  Sender: FDA-Public Use
  Company Number: US-009507513-1202USA01329

PATIENT
  Sex: Female
  Weight: 74.83 kg

DRUGS (4)
  1. FOSAMAX [Suspect]
     Indication: OSTEOPOROSIS
     Dosage: 70 MG, QW
     Route: 048
     Dates: start: 20020912, end: 200806
  2. ALENDRONATE SODIUM [Suspect]
     Indication: OSTEOPOROSIS
     Dosage: 70 MG, UNK
     Route: 048
     Dates: start: 200806, end: 201002
  3. CENTRUM SILVER [Concomitant]
     Dosage: UNK
     Dates: start: 2000
  4. CALTRATE WITH VITAMIN D [Concomitant]
     Dosage: UNK, QD
     Dates: start: 2000

REACTIONS (27)
  - Femur fracture [Recovered/Resolved]
  - Open reduction of fracture [Unknown]
  - Fall [Unknown]
  - Osteoporosis [Unknown]
  - Femur fracture [Unknown]
  - Femur fracture [Unknown]
  - Tibia fracture [Unknown]
  - Osteonecrosis [Unknown]
  - Hypertension [Not Recovered/Not Resolved]
  - Hypercholesterolaemia [Not Recovered/Not Resolved]
  - Bone infarction [Unknown]
  - Meniscus injury [Unknown]
  - Patellofemoral pain syndrome [Unknown]
  - Hernia repair [Unknown]
  - Osteonecrosis [Unknown]
  - Exostosis [Unknown]
  - Venous operation [Unknown]
  - Plantar fasciitis [Unknown]
  - Tendinous contracture [Unknown]
  - Tendonitis [Unknown]
  - Adverse drug reaction [Unknown]
  - Swelling [Unknown]
  - Hypokalaemia [Unknown]
  - Cyst [Unknown]
  - Rosacea [Unknown]
  - Blood pressure abnormal [Unknown]
  - Nodule [Unknown]
